FAERS Safety Report 17191072 (Version 1)
Quarter: 2019Q4

REPORT INFORMATION
  Report Type: Spontaneous
  Country: JP (occurrence: JP)
  Receive Date: 20191223
  Receipt Date: 20191223
  Transmission Date: 20200122
  Serious: Yes (Hospitalization)
  Sender: FDA-Public Use
  Company Number: JP-TEVA-2019-JP-1156539

PATIENT
  Age: 65 Year
  Sex: Male

DRUGS (12)
  1. OLMESARTAN MEDOXOMIL. [Concomitant]
     Active Substance: OLMESARTAN MEDOXOMIL
  2. MOSAPRIDE CITRATE HYDRATE [Concomitant]
     Active Substance: MOSAPRIDE CITRATE DIHYDRATE
  3. CARVEDILOL. [Concomitant]
     Active Substance: CARVEDILOL
  4. ALFACALCIDOL [Concomitant]
     Active Substance: ALFACALCIDOL
  5. ESOMEPRAZOLE MAGNESIUM HYDRATE [Concomitant]
     Active Substance: ESOMEPRAZOLE MAGNESIUM
  6. PRECIPITATED CALCIUM CARBONATE [Concomitant]
     Active Substance: CALCIUM CARBONATE
  7. VANCOMYCIN [Suspect]
     Active Substance: VANCOMYCIN
     Indication: STAPHYLOCOCCAL INFECTION
     Dosage: ADMINISTERED EVERY 2-3 DAYS AFTER DIALYSIS
     Route: 042
  8. LANTHANUM CARBONATE HYDRATE [Concomitant]
  9. ASPIRIN. [Concomitant]
     Active Substance: ASPIRIN
  10. AMLODIPINE BESILATE [Concomitant]
     Active Substance: AMLODIPINE BESYLATE
  11. PIPERACILLIN/TAZOBACTAM [Concomitant]
     Active Substance: PIPERACILLIN SODIUM\TAZOBACTAM SODIUM
     Indication: STAPHYLOCOCCAL INFECTION
     Dosage: 9 GRAM DAILY;
     Route: 042
  12. FERRIC CITRATE HYDRATE [Concomitant]

REACTIONS (3)
  - Traumatic lung injury [Recovering/Resolving]
  - Eosinophilic pneumonia acute [Recovering/Resolving]
  - Pleural effusion [Recovering/Resolving]
